FAERS Safety Report 4659683-3 (Version None)
Quarter: 2005Q2

REPORT INFORMATION
  Report Type: 
  Country: None (occurrence: None)
  Receive Date: 20050420
  Receipt Date: 20050301
  Transmission Date: 20051028
  Serious: No
  Sender: FDA-Public Use
  Company Number: PHEH2005US02609

PATIENT
  Age: 76 Year
  Sex: Female

DRUGS (1)
  1. ENABLEX [Suspect]
     Indication: BLADDER DISORDER
     Dosage: 7.5 MG QD ORAL
     Route: 048
     Dates: start: 20050221, end: 20050224

REACTIONS (1)
  - INSOMNIA [None]
